FAERS Safety Report 9150076 (Version 2)
Quarter: 2013Q2

REPORT INFORMATION
  Report Type: Spontaneous
  Country: US (occurrence: US)
  Receive Date: 20130308
  Receipt Date: 20130418
  Transmission Date: 20140414
  Serious: No
  Sender: FDA-Public Use
  Company Number: US-PFIZER INC-2013077494

PATIENT
  Age: 54 Year
  Sex: Female

DRUGS (2)
  1. DIFLUCAN [Suspect]
     Dosage: UNK
  2. XYREM [Suspect]
     Dosage: UNK

REACTIONS (3)
  - Rash papular [Unknown]
  - Chapped lips [Unknown]
  - Skin exfoliation [Unknown]
